FAERS Safety Report 18691862 (Version 2)
Quarter: 2025Q2

REPORT INFORMATION
  Report Type: Spontaneous
  Country: US (occurrence: US)
  Receive Date: 20210102
  Receipt Date: 20250627
  Transmission Date: 20250717
  Serious: Yes (Death, Life-Threatening, Other)
  Sender: AUROBINDO
  Company Number: US-MLMSERVICE-20201221-2640854-1

PATIENT
  Age: 49 Year
  Sex: Male

DRUGS (2)
  1. DIVALPROEX SODIUM [Suspect]
     Active Substance: DIVALPROEX SODIUM
     Indication: Bipolar I disorder
  2. DIVALPROEX SODIUM [Suspect]
     Active Substance: DIVALPROEX SODIUM

REACTIONS (3)
  - Idiosyncratic drug reaction [Fatal]
  - Acute hepatic failure [Fatal]
  - Encephalopathy [Fatal]
